FAERS Safety Report 5357779-4 (Version None)
Quarter: 2007Q2

REPORT INFORMATION
  Report Type: 
  Country: None (occurrence: None)
  Receive Date: 20070614
  Receipt Date: 20070606
  Transmission Date: 20071010
  Serious: Yes (Other)
  Sender: FDA-Public Use
  Company Number: JP-PFIZER INC-2007047990

PATIENT
  Sex: Male

DRUGS (1)
  1. DIFLUCAN [Suspect]

REACTIONS (2)
  - EOSINOPHIL COUNT INCREASED [None]
  - NEUTROPHIL COUNT DECREASED [None]
